FAERS Safety Report 8234777-4 (Version None)
Quarter: 2012Q1

REPORT INFORMATION
  Report Type: 
  Country: None (occurrence: None)
  Receive Date: 20120307
  Receipt Date: 20110201
  Transmission Date: 20120608
  Serious: Yes (Hospitalization, Other)
  Sender: FDA-Public Use
  Company Number: PHHY2010US77005

PATIENT
  Age: 63 Year
  Sex: Female
  Weight: 77.3 kg

DRUGS (18)
  1. AFINITOR [Suspect]
     Indication: RENAL CELL CARCINOMA
     Dosage: 10 MG, ORAL 10 MG, DAILY, ORAL
     Route: 048
     Dates: start: 20100721, end: 20101013
  2. AFINITOR [Suspect]
     Indication: MALIGNANT URINARY TRACT NEOPLASM
     Dosage: 10 MG, ORAL 10 MG, DAILY, ORAL
     Route: 048
     Dates: start: 20100721, end: 20101013
  3. CLONIDINE [Concomitant]
  4. COMPAZINE [Concomitant]
  5. LORTAB [Concomitant]
  6. ZANTAC [Concomitant]
  7. ALBUTEROL [Concomitant]
  8. GLIMEPIRIDE [Concomitant]
  9. TRAZODONE HCL [Concomitant]
  10. PRAVASTATIN [Concomitant]
  11. LISINOPRIL [Concomitant]
  12. OMEPRAZOLE [Concomitant]
  13. IMODOIUM (LOPERAMIDE HYDROCHLORIDE) [Concomitant]
  14. POTASSIUM CHLORIDE [Concomitant]
  15. ASPIRIN [Concomitant]
  16. FLOVENT [Concomitant]
  17. ZITHROMAX [Concomitant]
  18. SIMETHICONE (SIMETICONE) [Concomitant]

REACTIONS (12)
  - DYSGEUSIA [None]
  - ANGIOEDEMA [None]
  - DYSPNOEA [None]
  - SWOLLEN TONGUE [None]
  - WEIGHT DECREASED [None]
  - DRUG INEFFECTIVE [None]
  - PNEUMONITIS [None]
  - DECREASED APPETITE [None]
  - FATIGUE [None]
  - COUGH [None]
  - ATELECTASIS [None]
  - JOINT STIFFNESS [None]
